FAERS Safety Report 8369555-9 (Version None)
Quarter: 2012Q2

REPORT INFORMATION
  Report Type: 
  Country: None (occurrence: None)
  Receive Date: 20120518
  Receipt Date: 20110726
  Transmission Date: 20120825
  Serious: No
  Sender: FDA-Public Use
  Company Number: US-TEVA-2011003919

PATIENT
  Sex: Female
  Weight: 68.1 kg

DRUGS (3)
  1. DIVIGEL [Concomitant]
  2. NUVIGIL [Suspect]
     Indication: NARCOLEPSY
     Route: 048
     Dates: start: 20090801, end: 20091101
  3. NUVIGIL [Suspect]
     Indication: HYPERSOMNIA

REACTIONS (4)
  - MOOD ALTERED [None]
  - DRUG INEFFECTIVE [None]
  - ABDOMINAL DISCOMFORT [None]
  - HEADACHE [None]
